FAERS Safety Report 13745080 (Version 5)
Quarter: 2017Q3

REPORT INFORMATION
  Report Type: Report from Study
  Country: DE (occurrence: DE)
  Receive Date: 20170712
  Receipt Date: 20170831
  Transmission Date: 20171127
  Serious: Yes (Hospitalization)
  Sender: FDA-Public Use
  Company Number: DE-AMGEN-DEUNI2017103647

PATIENT
  Sex: Female
  Weight: 95 kg

DRUGS (40)
  1. CARFILZOMIB [Suspect]
     Active Substance: CARFILZOMIB
     Dosage: 10 MG, UNK
     Route: 042
     Dates: start: 20170314, end: 20170314
  2. CARFILZOMIB [Suspect]
     Active Substance: CARFILZOMIB
     Dosage: 10 MG, UNK
     Route: 042
     Dates: start: 20170411, end: 20170411
  3. LENALIDOMIDE [Suspect]
     Active Substance: LENALIDOMIDE
     Dosage: 10 MG, UNK
     Route: 065
     Dates: start: 20170331, end: 20170420
  4. DEXAMETHASONE. [Suspect]
     Active Substance: DEXAMETHASONE
     Dosage: 40 MG, UNK
     Route: 065
     Dates: start: 20170307, end: 20170307
  5. DEXAMETHASONE. [Suspect]
     Active Substance: DEXAMETHASONE
     Dosage: 40 MG, UNK
     Route: 065
     Dates: start: 20170314, end: 20170314
  6. DEXAMETHASONE. [Suspect]
     Active Substance: DEXAMETHASONE
     Dosage: 40 MG, UNK
     Route: 065
     Dates: start: 20170417, end: 20170417
  7. LISINOPRIL. [Concomitant]
     Active Substance: LISINOPRIL
     Indication: CARDIAC ASSISTANCE DEVICE USER
     Dosage: 2.5 MG, QD
  8. PRAMIPEXOL [Concomitant]
     Active Substance: PRAMIPEXOLE
     Indication: RESTLESS LEGS SYNDROME
     Dosage: 0.18 MG, QD
  9. BICANORM [Concomitant]
     Active Substance: SODIUM BICARBONATE
     Indication: CHRONIC KIDNEY DISEASE
     Dosage: 1 G, TID
  10. CARFILZOMIB [Suspect]
     Active Substance: CARFILZOMIB
     Dosage: 10 MG, UNK
     Route: 042
     Dates: start: 20170331, end: 20170331
  11. NOVAMINSULFON [Concomitant]
     Active Substance: METAMIZOLE
     Indication: BONE PAIN
     Dosage: 500 MG, (FOUR TIMES PER DAY)
  12. LAXANS-RATIOPHARM PICO [Concomitant]
     Indication: PROPHYLAXIS
     Dosage: 10 UNK, QD
  13. LENALIDOMIDE [Suspect]
     Active Substance: LENALIDOMIDE
     Indication: PLASMA CELL MYELOMA
     Dosage: 10 MG, UNK
     Route: 065
     Dates: start: 20170228, end: 20170320
  14. LENALIDOMIDE [Suspect]
     Active Substance: LENALIDOMIDE
     Dosage: 10 MG, UNK
     Route: 065
     Dates: start: 20170428, end: 20170518
  15. DEXAMETHASONE. [Suspect]
     Active Substance: DEXAMETHASONE
     Dosage: 40 MG, UNK
     Route: 065
     Dates: start: 20170504, end: 20170504
  16. CARFILZOMIB [Suspect]
     Active Substance: CARFILZOMIB
     Dosage: 27 MG, UNK
     Route: 042
     Dates: start: 20170307, end: 20170307
  17. LYRICA [Concomitant]
     Active Substance: PREGABALIN
     Indication: BONE PAIN
     Dosage: 50 MG, BID
  18. PRIVIGEN [Concomitant]
     Active Substance: HUMAN IMMUNOGLOBULIN G
     Indication: SECONDARY IMMUNODEFICIENCY
     Dosage: 30 MG, Q3WK
  19. DEXAMETHASONE. [Suspect]
     Active Substance: DEXAMETHASONE
     Indication: PLASMA CELL MYELOMA
     Dosage: 40 MG, UNK
     Route: 065
     Dates: start: 20170228, end: 20170228
  20. DEXAMETHASONE. [Suspect]
     Active Substance: DEXAMETHASONE
     Dosage: 40 MG, UNK
     Route: 065
     Dates: start: 20170321, end: 20170321
  21. PANTOPRAZOL RATIOPARM [Concomitant]
     Indication: PROPHYLAXIS
     Dosage: 40 MG, QD
  22. CARFILZOMIB [Suspect]
     Active Substance: CARFILZOMIB
     Indication: PLASMA CELL MYELOMA
     Dosage: 10 MG, UNK
     Route: 042
     Dates: start: 20170228, end: 20170228
  23. CARFILZOMIB [Suspect]
     Active Substance: CARFILZOMIB
     Dosage: 10 MG, UNK
     Route: 042
     Dates: start: 20170410, end: 20170410
  24. CARFILZOMIB [Suspect]
     Active Substance: CARFILZOMIB
     Dosage: 27 MG, UNK
     Route: 042
     Dates: start: 20170504, end: 20170504
  25. CARFILZOMIB [Suspect]
     Active Substance: CARFILZOMIB
     Dosage: 27 MG, UNK
     Route: 042
     Dates: start: 20170505, end: 20170505
  26. TORASEMID [Concomitant]
     Active Substance: TORSEMIDE
     Indication: CHRONIC KIDNEY DISEASE
     Dosage: 20 MG, QD
  27. EUTHYROX [Concomitant]
     Active Substance: LEVOTHYROXINE SODIUM
     Indication: PROPHYLAXIS
     Dosage: 100 MUG, QD
  28. HALDOL [Concomitant]
     Active Substance: HALOPERIDOL
     Indication: PROPHYLAXIS
     Dosage: 1 MG, QD
  29. CARFILZOMIB [Suspect]
     Active Substance: CARFILZOMIB
     Dosage: 10 MG, UNK
     Route: 042
     Dates: start: 20170301, end: 20170301
  30. CARFILZOMIB [Suspect]
     Active Substance: CARFILZOMIB
     Dosage: 27 MG, UNK
     Route: 042
     Dates: start: 20170308, end: 20170308
  31. CARFILZOMIB [Suspect]
     Active Substance: CARFILZOMIB
     Dosage: 10 MG, UNK
     Route: 042
     Dates: start: 20170315, end: 20170315
  32. CARFILZOMIB [Suspect]
     Active Substance: CARFILZOMIB
     Dosage: 10 MG, UNK
     Route: 042
     Dates: start: 20170401, end: 20170401
  33. DEXAMETHASONE. [Suspect]
     Active Substance: DEXAMETHASONE
     Dosage: 40 MG, UNK
     Route: 065
     Dates: start: 20170331, end: 20170331
  34. DEXAMETHASONE. [Suspect]
     Active Substance: DEXAMETHASONE
     Dosage: 40 MG, UNK
     Route: 065
     Dates: start: 20170410, end: 20170410
  35. DEXAMETHASONE. [Suspect]
     Active Substance: DEXAMETHASONE
     Dosage: 40 MG, UNK
     Route: 065
     Dates: start: 20170424, end: 20170424
  36. CALCILAC [Concomitant]
     Active Substance: CALCIUM CARBONATE
     Indication: PROPHYLAXIS
     Dosage: 500 MG, QD
     Dates: start: 2016
  37. COTRIM [Concomitant]
     Active Substance: SULFAMETHOXAZOLE\TRIMETHOPRIM
     Indication: PROPHYLAXIS
     Dosage: 960 MG, QWK
     Dates: start: 20170410
  38. PALLADON [Concomitant]
     Active Substance: HYDROMORPHONE
     Indication: BONE PAIN
     Dosage: 20 MG, QD
  39. NEUPRO [Concomitant]
     Active Substance: ROTIGOTINE
     Indication: RESTLESS LEGS SYNDROME
     Dosage: 10 MG, QD
  40. ACIC [Concomitant]
     Active Substance: ACYCLOVIR
     Indication: PROPHYLAXIS
     Dosage: 400 MG, QD
     Dates: start: 20170307

REACTIONS (8)
  - Malaise [Not Recovered/Not Resolved]
  - Neutrophil count decreased [Recovered/Resolved]
  - Hypocalcaemia [Not Recovered/Not Resolved]
  - Oral pain [Recovered/Resolved]
  - Nausea [Recovered/Resolved]
  - Anaemia [Recovering/Resolving]
  - Vomiting [Recovered/Resolved]
  - Platelet count decreased [Not Recovered/Not Resolved]

NARRATIVE: CASE EVENT DATE: 20170328
